FAERS Safety Report 8990273 (Version 1)
Quarter: 2012Q4

REPORT INFORMATION
  Report Type: 
  Country: FR (occurrence: FR)
  Receive Date: 20121228
  Receipt Date: 20121228
  Transmission Date: 20130627
  Serious: Yes (Hospitalization)
  Sender: FDA-Public Use
  Company Number: FR-009507513-1212FRA009804

PATIENT
  Age: 82 Year
  Sex: Female

DRUGS (12)
  1. PROGLICEM [Suspect]
     Indication: HYPERINSULINISM
     Dosage: 25 mg, bid
     Route: 048
     Dates: start: 20121020, end: 20121126
  2. CALCIPARINE [Suspect]
     Indication: THROMBOSIS PROPHYLAXIS
     Dosage: 0.2 ml, bid
     Route: 042
     Dates: start: 20120929, end: 20121105
  3. DOLIPRANE [Suspect]
     Indication: PAIN
     Dosage: UNK
     Route: 048
     Dates: start: 20121101, end: 20121112
  4. INEXIUM [Suspect]
     Indication: PROPHYLAXIS AGAINST GASTROINTESTINAL ULCER
     Dosage: 40 mg, UNK
     Route: 042
     Dates: start: 20121023
  5. ISOPTINE [Concomitant]
     Indication: PRODUCT USED FOR UNKNOWN INDICATION
  6. KARDEGIC [Concomitant]
     Indication: PRODUCT USED FOR UNKNOWN INDICATION
  7. PLAVIX [Concomitant]
     Indication: PRODUCT USED FOR UNKNOWN INDICATION
  8. COVERSYL (PERINDOPRIL ARGININE) [Concomitant]
     Indication: PRODUCT USED FOR UNKNOWN INDICATION
  9. LASILIX [Concomitant]
     Indication: PRODUCT USED FOR UNKNOWN INDICATION
  10. NITRIDERM [Concomitant]
     Indication: PRODUCT USED FOR UNKNOWN INDICATION
  11. CORVASAL (MOLSIDOMINE) [Concomitant]
     Indication: PRODUCT USED FOR UNKNOWN INDICATION
  12. ADANCOR [Concomitant]
     Indication: PRODUCT USED FOR UNKNOWN INDICATION

REACTIONS (2)
  - Neutropenia [Recovered/Resolved]
  - Thrombocytopenia [Recovered/Resolved]
